FAERS Safety Report 8543656 (Version 3)
Quarter: 2013Q4

REPORT INFORMATION
  Report Type: Spontaneous
  Country: US (occurrence: US)
  Receive Date: 20120503
  Receipt Date: 20131223
  Transmission Date: 20140711
  Serious: Yes (Hospitalization, Other)
  Sender: FDA-Public Use
  Company Number: US-BAYER-2012-041784

PATIENT
  Age: 32 Year
  Sex: Female
  Weight: 98 kg

DRUGS (4)
  1. YAZ [Suspect]
     Dosage: UNK
     Dates: start: 201007, end: 201101
  2. THERAFLU [Concomitant]
     Indication: NASOPHARYNGITIS
  3. LORTAB [Concomitant]
     Dosage: UNK
     Dates: start: 20100410
  4. CIPRO [Concomitant]
     Dosage: UNK
     Dates: start: 20100410

REACTIONS (12)
  - Cholecystectomy [None]
  - Cholecystitis chronic [None]
  - Pain [None]
  - Injury [None]
  - Emotional distress [None]
  - Anxiety [None]
  - Anhedonia [None]
  - Dyspnoea [None]
  - Decreased activity [None]
  - Haemorrhage [None]
  - Abasia [None]
  - Hirsutism [None]
